FAERS Safety Report 11667955 (Version 1)
Quarter: 2015Q4

REPORT INFORMATION
  Report Type: Spontaneous
  Country: CH (occurrence: CH)
  Receive Date: 20151027
  Receipt Date: 20151027
  Transmission Date: 20160304
  Serious: Yes (Death)
  Sender: FDA-Public Use
  Company Number: CH-TEVA-601756ISR

PATIENT
  Age: 23 Month
  Sex: Male
  Weight: 13 kg

DRUGS (27)
  1. MABTHERA [Suspect]
     Active Substance: RITUXIMAB
     Dosage: 190 MILLIGRAM DAILY;
     Route: 041
     Dates: start: 20150715
  2. AMPHO MORONAL [Concomitant]
     Route: 048
     Dates: start: 20150707, end: 20150709
  3. NIFEDIPIN RATIOPHARM [Suspect]
     Active Substance: NIFEDIPINE
     Dosage: 30 MILLIGRAM DAILY;
     Route: 048
     Dates: start: 20150617, end: 20150707
  4. NERVIFENE [Concomitant]
     Active Substance: CHLORAL HYDRATE
     Dosage: 1040 MILLIGRAM DAILY;
     Route: 054
     Dates: start: 20150615, end: 20150716
  5. AMPHO MORONAL [Concomitant]
     Route: 048
     Dates: start: 20150713, end: 20150716
  6. OMEZOL MEPHA [Suspect]
     Active Substance: OMEPRAZOLE
     Dosage: 10 MILLIGRAM DAILY;
     Route: 042
     Dates: start: 20150615, end: 20150716
  7. SPORANOX [Suspect]
     Active Substance: ITRACONAZOLE
     Dosage: 60 MILLIGRAM DAILY;
     Route: 048
     Dates: start: 20150709, end: 20150713
  8. ACTILYSE [Concomitant]
     Active Substance: ALTEPLASE
     Dosage: 1.2 MILLIGRAM DAILY;
     Route: 042
     Dates: start: 20150625, end: 20150625
  9. TRACRIUM [Concomitant]
     Active Substance: ATRACURIUM BESYLATE
     Dosage: 39 MILLIGRAM DAILY;
     Route: 042
     Dates: start: 20150626, end: 20150626
  10. SPORANOX [Suspect]
     Active Substance: ITRACONAZOLE
     Dosage: 60  DAILY;
     Route: 048
     Dates: start: 20150222, end: 20150707
  11. PROPANOLOL [Concomitant]
     Active Substance: PROPRANOLOL HYDROCHLORIDE
     Dosage: 7.5 MILLIGRAM DAILY;
     Route: 048
     Dates: start: 20150617, end: 20150716
  12. SPIRICORT [Concomitant]
     Active Substance: PREDNISOLONE
     Dosage: DOSE: 1-2MG/KG
     Route: 048
     Dates: start: 20150130, end: 20150704
  13. MORPHIN HCL SINTETICA [Concomitant]
     Dosage: DOSE: 40-50 MCG/ KG/ H, ONLY PARTIALLY LABELED
     Route: 065
     Dates: start: 20150615, end: 20150716
  14. VELCADE [Suspect]
     Active Substance: BORTEZOMIB
     Dosage: .65 MILLIGRAM DAILY;
     Route: 042
     Dates: start: 20150604, end: 20150604
  15. MABTHERA [Suspect]
     Active Substance: RITUXIMAB
     Dosage: 190 MILLIGRAM DAILY;
     Route: 041
     Dates: start: 20150625
  16. RENITEN SUBMITE [Suspect]
     Active Substance: ENALAPRIL MALEATE
     Dosage: DOSE UNKNOWN
     Route: 048
     Dates: start: 20150702, end: 20150707
  17. VELCADE [Suspect]
     Active Substance: BORTEZOMIB
     Dosage: .65 MILLIGRAM DAILY;
     Route: 042
     Dates: start: 20150626, end: 20150626
  18. MABTHERA [Suspect]
     Active Substance: RITUXIMAB
     Dosage: 190 MILLIGRAM DAILY;
     Route: 041
     Dates: start: 20150428, end: 20150603
  19. VANCOCIN [Concomitant]
     Active Substance: VANCOMYCIN HYDROCHLORIDE
     Dosage: 660 MILLIGRAM DAILY;
     Route: 042
     Dates: start: 20150615, end: 20150623
  20. VINCRISTIN [Concomitant]
     Active Substance: VINCRISTINE
     Dosage: DOSE UNKNOWN
     Route: 065
     Dates: start: 20150417, end: 20150604
  21. NOPIL [Suspect]
     Active Substance: SULFAMETHOXAZOLE\TRIMETHOPRIM
     Dosage: 360 MILLIGRAM DAILY;
     Route: 048
     Dates: start: 20150615, end: 20150618
  22. VELCADE [Suspect]
     Active Substance: BORTEZOMIB
     Dosage: .65 MILLIGRAM DAILY;
     Route: 042
     Dates: start: 20150417, end: 20150417
  23. CELLCEPT [Suspect]
     Active Substance: MYCOPHENOLATE MOFETIL\MYCOPHENOLATE MOFETIL HYDROCHLORIDE
     Dosage: 660 MILLIGRAM DAILY;
     Route: 048
     Dates: start: 20150513, end: 20150715
  24. DORMICUM [Concomitant]
     Active Substance: MIDAZOLAM\MIDAZOLAM HYDROCHLORIDE
     Dosage: DOSAGE: SINCE 15-JUN-2015 AS CONTINUOUS DRIP 0.2-0.3 MG /KG /H
     Route: 042
     Dates: start: 20150615, end: 20150716
  25. RAPAMUNE [Suspect]
     Active Substance: SIROLIMUS
     Dosage: .6 MILLIGRAM DAILY; PROBE
     Route: 065
     Dates: start: 20150513, end: 20150704
  26. ZOVIRAX [Suspect]
     Active Substance: ACYCLOVIR
     Dosage: 480 MILLIGRAM DAILY; DOSE ADJUSTMENT ON 12-JUL-2015
     Route: 048
     Dates: start: 20150615, end: 20150716
  27. ROCURONIUM FRESENIUS [Concomitant]
     Dosage: DOSAGE: 0.6-1.2 MG/KG/H
     Route: 042
     Dates: start: 20150615, end: 20150630

REACTIONS (6)
  - Oedema peripheral [Fatal]
  - Transaminases increased [Fatal]
  - Oxygen saturation decreased [Fatal]
  - Liver disorder [Fatal]
  - Renal failure [Fatal]
  - Hyperbilirubinaemia [Fatal]

NARRATIVE: CASE EVENT DATE: 20150614
